FAERS Safety Report 6177752-6 (Version None)
Quarter: 2009Q2

REPORT INFORMATION
  Report Type: 
  Country: None (occurrence: None)
  Receive Date: 20090504
  Receipt Date: 20090114
  Transmission Date: 20091009
  Serious: No
  Sender: FDA-Public Use
  Company Number: US-ALEXION-A200800404

PATIENT
  Sex: Male
  Weight: 80.272 kg

DRUGS (16)
  1. SOLIRIS [Suspect]
     Indication: PAROXYSMAL NOCTURNAL HAEMOGLOBINURIA
     Dosage: UNK
     Route: 042
     Dates: start: 20071201
  2. FLOMAX [Concomitant]
     Indication: PROSTATOMEGALY
     Dosage: 0.4 MG, QD
     Route: 048
  3. FINASTERIDE [Concomitant]
     Indication: PROSTATOMEGALY
     Dosage: 5 MG, QD
     Route: 048
  4. POTASSIUM CHLORIDE [Concomitant]
     Dosage: 10 MG, QD
     Route: 048
  5. ATENOLOL [Concomitant]
     Indication: BLOOD PRESSURE ABNORMAL
     Dosage: 50 MG, QD
     Route: 048
  6. FUROSEMIDE [Concomitant]
     Indication: OEDEMA
     Dosage: 40 MG, QD
     Route: 048
  7. VERAPAMIL [Concomitant]
     Indication: CARDIAC DISORDER
     Dosage: 180 MG, QD
     Route: 048
  8. CHLORDIAZEPOXIDE [Concomitant]
     Indication: ANXIETY
     Dosage: 10 MG, QD
     Route: 048
  9. LEVOTHYROXINE SODIUM [Concomitant]
     Indication: THYROID DISORDER
     Dosage: 75 MG, QD
     Route: 048
  10. GLIPIZIDE [Concomitant]
     Indication: DIABETES MELLITUS
     Dosage: 5 MG, QD
     Route: 048
  11. INSULIN [Concomitant]
     Indication: DIABETES MELLITUS
     Dosage: UNK
  12. PREDNISONE [Concomitant]
     Indication: PAROXYSMAL NOCTURNAL HAEMOGLOBINURIA
     Dosage: 10 MG, QD
     Route: 048
  13. ASPIRIN [Concomitant]
     Indication: CARDIAC DISORDER
     Dosage: 81 MG, QD
     Route: 048
  14. FOLATE [Concomitant]
     Indication: PAROXYSMAL NOCTURNAL HAEMOGLOBINURIA
     Dosage: 1 MG, QD
     Route: 048
  15. LORTAB [Concomitant]
     Indication: PAIN IN EXTREMITY
     Dosage: 5/500 MG, PRN
     Route: 048
  16. ARANESP [Concomitant]
     Indication: RED BLOOD CELL COUNT ABNORMAL
     Dosage: Q2W

REACTIONS (1)
  - PAIN IN EXTREMITY [None]
